FAERS Safety Report 8266311-7 (Version None)
Quarter: 2012Q2

REPORT INFORMATION
  Report Type: 
  Country: None (occurrence: None)
  Receive Date: 20120406
  Receipt Date: 20120323
  Transmission Date: 20120825
  Serious: Yes (Hospitalization)
  Sender: FDA-Public Use
  Company Number: US-AMGEN-KDL392047

PATIENT
  Age: 63 Year
  Sex: Female
  Weight: 138.9 kg

DRUGS (12)
  1. NPLATE [Suspect]
     Dosage: 700 MUG, QWK
     Route: 042
     Dates: start: 20090806
  2. NPLATE [Suspect]
     Dosage: 850 MUG, QWK
     Route: 042
     Dates: start: 20090820
  3. VENLAFAXINE HCL [Concomitant]
  4. NPLATE [Suspect]
     Dosage: 560 MUG, QWK
     Route: 042
     Dates: start: 20090507
  5. NPLATE [Suspect]
     Dosage: 200 MUG, QWK
     Dates: start: 20100317
  6. LEVOTHYROXINE SODIUM [Concomitant]
  7. NPLATE [Suspect]
     Indication: IDIOPATHIC THROMBOCYTOPENIC PURPURA
     Dosage: 60 MUG, UNK
     Dates: start: 20080701
  8. VALSARTAN [Concomitant]
  9. GLYBURIDE AND METFORMIN HYDROCHLORIDE [Concomitant]
  10. NPLATE [Suspect]
     Dosage: 990 MUG, QWK
     Route: 042
     Dates: start: 20090917
  11. HYDROCHLOROTHIAZIDE [Concomitant]
  12. INSULIN [Concomitant]

REACTIONS (3)
  - PULMONARY EMBOLISM [None]
  - DYSGEUSIA [None]
  - HYPOGEUSIA [None]
